FAERS Safety Report 15044546 (Version 2)
Quarter: 2021Q3

REPORT INFORMATION
  Report Type: Spontaneous
  Country: US (occurrence: US)
  Receive Date: 20180621
  Receipt Date: 20210924
  Transmission Date: 20211014
  Serious: Yes (Disabling)
  Sender: FDA-Public Use
  Company Number: US-TEVA-2018-US-910600

PATIENT
  Age: 51 Year
  Sex: Female
  Weight: 97.97 kg

DRUGS (10)
  1. DOCETAXEL SAGENT [Suspect]
     Active Substance: DOCETAXEL
     Indication: BREAST CANCER FEMALE
     Dosage: STRENGTH: 75MG/M2 (80MG/4ML) ; DOSE: 150MG; FREQUENCY: EVERY THREE WEEKS
     Route: 042
     Dates: start: 20141230, end: 20141230
  2. DOCETAXEL SANOFI [Suspect]
     Active Substance: DOCETAXEL
     Indication: BREAST CANCER FEMALE
     Dosage: STRENGTH: 75MG/M2 (80MG/4ML) ; DOSE: 150MG; FREQUENCY: EVERY THREE WEEKS
     Route: 042
     Dates: start: 20150302, end: 20150302
  3. LISINOPRIL. [Concomitant]
     Active Substance: LISINOPRIL
     Route: 065
  4. CYTOXAN [Suspect]
     Active Substance: CYCLOPHOSPHAMIDE
     Indication: BREAST CANCER FEMALE
     Dosage: STRENGTH: 600MG/M2; DOSE: 200MG; FREQUENCY: EVERY THREE WEEKS
     Route: 042
     Dates: start: 20141230, end: 20150302
  5. ASPIRIN. [Concomitant]
     Active Substance: ASPIRIN
     Route: 065
  6. DOCETAXEL SAGENT [Suspect]
     Active Substance: DOCETAXEL
     Dosage: STRENGTH: 75MG/M2 (80MG/4ML) ; DOSE: 150MG; FREQUENCY: EVERY THREE WEEKS
     Route: 042
     Dates: start: 20150209, end: 20150209
  7. IBUPROFEN. [Concomitant]
     Active Substance: IBUPROFEN
     Route: 065
  8. VITAMIN D [Concomitant]
     Active Substance: VITAMIN D NOS
     Route: 065
  9. DOCETAXEL SAGENT [Suspect]
     Active Substance: DOCETAXEL
     Dosage: STRENGTH: 75MG/M2 (80MG/4ML) ; DOSE: 150MG; FREQUENCY: EVERY THREE WEEKS
     Route: 042
     Dates: start: 20150119, end: 20150119
  10. COMPAZINE [Concomitant]
     Active Substance: PROCHLORPERAZINE MALEATE
     Route: 065

REACTIONS (20)
  - Nausea [Recovered/Resolved]
  - Vomiting [Recovered/Resolved]
  - Madarosis [Not Recovered/Not Resolved]
  - Fluid retention [Unknown]
  - Hair colour changes [Not Recovered/Not Resolved]
  - Fatigue [Recovered/Resolved]
  - Taste disorder [Recovered/Resolved]
  - Diarrhoea [Recovered/Resolved]
  - Hypoaesthesia [Unknown]
  - Menstruation irregular [Recovered/Resolved]
  - Hypokinesia [Not Recovered/Not Resolved]
  - Peripheral swelling [Unknown]
  - Oedema [Unknown]
  - Hair texture abnormal [Not Recovered/Not Resolved]
  - Rash pruritic [Recovered/Resolved]
  - Eczema [Recovered/Resolved]
  - Alopecia areata [Not Recovered/Not Resolved]
  - Pruritus [Recovered/Resolved]
  - Chest discomfort [Not Recovered/Not Resolved]
  - Myalgia [Unknown]

NARRATIVE: CASE EVENT DATE: 2015
